FAERS Safety Report 15496868 (Version 1)
Quarter: 2018Q4

REPORT INFORMATION
  Report Type: Spontaneous
  Country: ES (occurrence: ES)
  Receive Date: 20181015
  Receipt Date: 20181015
  Transmission Date: 20190205
  Serious: Yes (Other)
  Sender: FDA-Public Use
  Company Number: ES-HETERO CORPORATE-HET2017ES00459

PATIENT
  Age: 32 Year
  Sex: Female

DRUGS (4)
  1. LINEZOLID. [Suspect]
     Active Substance: LINEZOLID
     Indication: LISTERIOSIS
     Dosage: 600 MG (12 HOUR)
     Route: 065
  2. AMPICILLIN                         /00000502/ [Concomitant]
     Active Substance: AMPICILLIN
     Indication: LISTERIOSIS
     Dosage: 3 G (6 HOUR)
     Route: 065
  3. DEXAMETHASONE                      /00016002/ [Concomitant]
     Active Substance: DEXAMETHASONE SODIUM PHOSPHATE
     Indication: LISTERIOSIS
     Dosage: 2 MG (12 HOUR)
     Route: 065
  4. COTRIMOXAZOLE [Concomitant]
     Active Substance: SULFAMETHOXAZOLE\TRIMETHOPRIM
     Indication: LISTERIOSIS
     Dosage: UNK (800 MG AND 160MG (8 HOURS))
     Route: 065

REACTIONS (2)
  - Off label use [Unknown]
  - Thrombocytopenia [Recovered/Resolved]
